FAERS Safety Report 5136249-2 (Version None)
Quarter: 2006Q4

REPORT INFORMATION
  Report Type: 
  Country: None (occurrence: None)
  Receive Date: 20061027
  Receipt Date: 20060109
  Transmission Date: 20070319
  Serious: Yes (Death)
  Sender: FDA-Public Use
  Company Number: US-AVENTIS-200610363US

PATIENT
  Sex: Male

DRUGS (13)
  1. LANTUS [Suspect]
     Indication: DIABETES MELLITUS NON-INSULIN-DEPENDENT
     Dates: start: 20051222, end: 20060302
  2. OPTICLIK (INSULIN INJECTION PEN) [Suspect]
  3. ALLOPURINOL [Concomitant]
     Dosage: DOSE: UNK
  4. PROCARDIA XL [Concomitant]
     Dosage: DOSE: UNK
  5. ZESTRIL [Concomitant]
     Dosage: DOSE: UNK
  6. TOPRIL [Concomitant]
     Dosage: DOSE: UNK
  7. LIPITOR [Concomitant]
     Dosage: DOSE: UNK
  8. GLUCOVANCE DURAGESIC [Concomitant]
     Dosage: DOSE: UNK
  9. IMODIUM [Concomitant]
     Dosage: DOSE: UNK
  10. FLUOROURACIL [Concomitant]
     Dosage: DOSE: UNK
  11. AVASTIN [Concomitant]
     Dosage: DOSE: UNK
  12. LEUCOVORIN CALCIUM [Concomitant]
     Dosage: DOSE: UNK
  13. ALL OTHER THERAPEUTIC PRODUCTS [Concomitant]
     Dosage: DOSE: UNK

REACTIONS (4)
  - BLOOD GLUCOSE INCREASED [None]
  - COLON CANCER [None]
  - DEVICE MALFUNCTION [None]
  - PHARMACEUTICAL PRODUCT COMPLAINT [None]
